FAERS Safety Report 14182156 (Version 2)
Quarter: 2017Q4

REPORT INFORMATION
  Report Type: Report from Study
  Country: CA (occurrence: CA)
  Receive Date: 20171113
  Receipt Date: 20171116
  Transmission Date: 20180321
  Serious: Yes (Disabling)
  Sender: FDA-Public Use
  Company Number: CA-AMGEN-CANSL2017140349

PATIENT
  Age: 87 Year
  Sex: Male
  Weight: 79.5 kg

DRUGS (2)
  1. KYPROLIS [Suspect]
     Active Substance: CARFILZOMIB
     Indication: PLASMA CELL MYELOMA
     Dosage: 54 MG, ON DAY 1,2,8,9,15,16
     Route: 042
     Dates: start: 201707
  2. KYPROLIS [Suspect]
     Active Substance: CARFILZOMIB
     Dosage: 54 MG, ON DAY 1,2,8,9,15,16
     Route: 042
     Dates: start: 20170908, end: 20170908

REACTIONS (11)
  - Somnolence [Not Recovered/Not Resolved]
  - Malaise [Not Recovered/Not Resolved]
  - Fatigue [Not Recovered/Not Resolved]
  - Anxiety [Not Recovered/Not Resolved]
  - Nausea [Not Recovered/Not Resolved]
  - Infusion site erythema [Recovered/Resolved]
  - Infusion site pain [Recovered/Resolved]
  - Dyspnoea [Not Recovered/Not Resolved]
  - Infusion site discomfort [Recovered/Resolved]
  - Depressed mood [Not Recovered/Not Resolved]
  - Infusion site coldness [Recovered/Resolved]

NARRATIVE: CASE EVENT DATE: 2017
